FAERS Safety Report 5801878-7 (Version None)
Quarter: 2008Q3

REPORT INFORMATION
  Report Type: 
  Country: None (occurrence: None)
  Receive Date: 20080707
  Receipt Date: 20080627
  Transmission Date: 20090109
  Serious: Yes (Other)
  Sender: FDA-Public Use
  Company Number: AU-ASTRAZENECA-2008AP04549

PATIENT

DRUGS (3)
  1. CRESTOR [Suspect]
     Route: 048
     Dates: end: 20080612
  2. VENLAFAXINE HCL [Interacting]
  3. RISPERIDONE [Interacting]

REACTIONS (4)
  - BLOOD CHLORIDE DECREASED [None]
  - BLOOD SODIUM DECREASED [None]
  - DRUG INTERACTION [None]
  - HEPATIC FAILURE [None]
